FAERS Safety Report 7556894-4 (Version None)
Quarter: 2011Q2

REPORT INFORMATION
  Report Type: 
  Country: None (occurrence: None)
  Receive Date: 20110620
  Receipt Date: 20110609
  Transmission Date: 20111010
  Serious: Yes (Other)
  Sender: FDA-Public Use
  Company Number: US-ROCHE-548699

PATIENT
  Sex: Female
  Weight: 73.9 kg

DRUGS (8)
  1. MINOCYCLINE HCL [Concomitant]
  2. KEFLEX [Concomitant]
  3. ACCUTANE [Suspect]
     Route: 048
     Dates: start: 19960209, end: 19960309
  4. ACCUTANE [Suspect]
     Dosage: THE PATIENT WAS PRESCRIBED ISOTRETINOIN 40 MG 2-2-2
     Route: 048
     Dates: start: 19960112, end: 19960208
  5. ACCUTANE [Suspect]
     Dosage: THE PATIENT WAS PRESCRIBED ISOTRETINOIN 40 MG 2-1-2
     Route: 048
     Dates: start: 19951201, end: 19960111
  6. CIPROFLOXACIN HCL [Concomitant]
  7. ACCUTANE [Suspect]
     Indication: ACNE
     Route: 048
     Dates: start: 19951113, end: 19951130
  8. BACTROBAN [Concomitant]

REACTIONS (20)
  - PANCYTOPENIA [None]
  - XEROSIS [None]
  - HEPATIC FAILURE [None]
  - CHOLANGITIS SCLEROSING [None]
  - DEPRESSION [None]
  - CHOLANGITIS SUPPURATIVE [None]
  - ANAEMIA [None]
  - CROHN'S DISEASE [None]
  - CONSTIPATION [None]
  - CHEILITIS [None]
  - ACNE [None]
  - IRRITABLE BOWEL SYNDROME [None]
  - HYDROCEPHALUS [None]
  - LIMB INJURY [None]
  - EMOTIONAL DISTRESS [None]
  - OBSESSIVE-COMPULSIVE DISORDER [None]
  - INFLAMMATORY BOWEL DISEASE [None]
  - COLITIS ULCERATIVE [None]
  - ANXIETY [None]
  - WOUND INFECTION [None]
